FAERS Safety Report 10561016 (Version 1)
Quarter: 2014Q4

REPORT INFORMATION
  Report Type: Spontaneous
  Country: US (occurrence: US)
  Receive Date: 20141103
  Receipt Date: 20141103
  Transmission Date: 20150529
  Serious: Yes (Other)
  Sender: FDA-Public Use
  Company Number: US-TEVA-519991USA

PATIENT
  Age: 67 Year
  Sex: Female

DRUGS (4)
  1. TOBRAMYCIN. [Concomitant]
     Active Substance: TOBRAMYCIN
     Indication: ARTHRITIS INFECTIVE
     Dosage: ANTIBACTERIAL SPACER IN HIP
     Route: 050
  2. VANCOMYCIN [Suspect]
     Active Substance: VANCOMYCIN
     Dosage: ANTIBACTERIAL SPACER IN HIP
     Route: 050
  3. CEFTRIAXONE. [Suspect]
     Active Substance: CEFTRIAXONE
     Route: 042
  4. VANCOMYCIN [Suspect]
     Active Substance: VANCOMYCIN
     Indication: ARTHRITIS INFECTIVE
     Route: 042

REACTIONS (3)
  - Cerebrovascular accident [Recovering/Resolving]
  - Drug reaction with eosinophilia and systemic symptoms [Recovering/Resolving]
  - Encephalopathy [Recovering/Resolving]
